FAERS Safety Report 10206987 (Version 1)
Quarter: 2014Q2

REPORT INFORMATION
  Report Type: Report from Study
  Country: US (occurrence: US)
  Receive Date: 20140530
  Receipt Date: 20140530
  Transmission Date: 20141212
  Serious: Yes (Other)
  Sender: FDA-Public Use
  Company Number: US-ROCHE-1409656

PATIENT
  Age: 68 Year
  Sex: Female
  Weight: 65.83 kg

DRUGS (3)
  1. RITUXIMAB [Suspect]
     Indication: LYMPHOMA
     Route: 042
  2. VITAMIN B COMPLEX [Concomitant]
     Dosage: SUPPLEMENT
     Route: 048
  3. TYLENOL [Concomitant]
     Indication: PAIN
     Route: 048

REACTIONS (6)
  - Ill-defined disorder [Unknown]
  - Tremor [Not Recovered/Not Resolved]
  - Pharyngitis streptococcal [Not Recovered/Not Resolved]
  - Swelling [Not Recovered/Not Resolved]
  - Deafness unilateral [Not Recovered/Not Resolved]
  - Cheilitis [Not Recovered/Not Resolved]
